FAERS Safety Report 6406020-X (Version None)
Quarter: 2009Q4

REPORT INFORMATION
  Report Type: 
  Country: None (occurrence: None)
  Receive Date: 20091014
  Receipt Date: 20090930
  Transmission Date: 20100525
  Serious: Yes (Hospitalization)
  Sender: FDA-Public Use
  Company Number: 2009AC000034

PATIENT
  Age: 87 Year
  Sex: Female

DRUGS (5)
  1. DIGOXIN [Suspect]
     Dosage: 0.25 MG; QD; PO
     Route: 048
  2. LEVOTHYROXINE SODIUM [Concomitant]
  3. WARFARIN SODIUM [Concomitant]
  4. METOPROLOL [Concomitant]
  5. ACETAMINOPHEN [Concomitant]

REACTIONS (16)
  - ANHEDONIA [None]
  - ANXIETY [None]
  - ATRIAL FIBRILLATION [None]
  - BRADYCARDIA [None]
  - CEREBRAL MICROANGIOPATHY [None]
  - CONDITION AGGRAVATED [None]
  - ECONOMIC PROBLEM [None]
  - FALL [None]
  - FEMORAL NECK FRACTURE [None]
  - HEART INJURY [None]
  - HEART RATE IRREGULAR [None]
  - HYPOTHYROIDISM [None]
  - MULTIPLE INJURIES [None]
  - PAIN [None]
  - QUALITY OF LIFE DECREASED [None]
  - THERAPEUTIC AGENT TOXICITY [None]
